APPROVED DRUG PRODUCT: LOVAZA
Active Ingredient: OMEGA-3-ACID ETHYL ESTERS
Strength: 1GM CONTAINS AT LEAST 900MG OF THE ETHYL ESTERS OF OMEGA-3 FATTY ACIDS
Dosage Form/Route: CAPSULE;ORAL
Application: N021654 | Product #001 | TE Code: AB
Applicant: WAYLIS THERAPEUTICS LLC
Approved: Nov 10, 2004 | RLD: Yes | RS: Yes | Type: RX